FAERS Safety Report 5635563-1 (Version None)
Quarter: 2008Q1

REPORT INFORMATION
  Report Type: 
  Country: None (occurrence: None)
  Receive Date: 20080222
  Receipt Date: 20080214
  Transmission Date: 20080703
  Serious: Yes (Other)
  Sender: FDA-Public Use
  Company Number: US-PFIZER INC-2008014954

PATIENT

DRUGS (1)
  1. CELEBREX [Suspect]
     Indication: SPONDYLITIS

REACTIONS (1)
  - CORONARY ARTERY BYPASS [None]
